FAERS Safety Report 5960732-0 (Version None)
Quarter: 2008Q4

REPORT INFORMATION
  Report Type: 
  Country: None (occurrence: None)
  Receive Date: 20081120
  Receipt Date: 20081111
  Transmission Date: 20090506
  Serious: Yes (Other)
  Sender: FDA-Public Use
  Company Number: US-PFIZER INC-2008086383

PATIENT
  Sex: Female
  Weight: 145.2 kg

DRUGS (9)
  1. CELEBREX [Suspect]
     Indication: RHEUMATOID ARTHRITIS
     Route: 048
     Dates: start: 20061201
  2. CELEBREX [Suspect]
     Indication: OSTEOARTHRITIS
  3. PREDNISONE TAB [Concomitant]
  4. METHOTREXATE [Concomitant]
     Dates: start: 20060101
  5. MEDROL [Concomitant]
     Dates: start: 20060101
  6. PLAQUENIL [Concomitant]
     Dates: start: 20060101, end: 20080901
  7. ULTRACET [Concomitant]
     Dosage: TEXT:1-2-FREQ:EVERY 6-8 HOURS AS NEEDED
     Route: 048
     Dates: start: 20060101
  8. HUMIRA [Concomitant]
     Route: 058
     Dates: start: 20060101
  9. ULTRAM [Concomitant]

REACTIONS (3)
  - ABNORMAL DREAMS [None]
  - HYPERTENSION [None]
  - THYROID DISORDER [None]
